FAERS Safety Report 4957035-X (Version None)
Quarter: 2006Q1

REPORT INFORMATION
  Report Type: 
  Country: None (occurrence: None)
  Receive Date: 20060329
  Receipt Date: 20060327
  Transmission Date: 20060701
  Serious: Yes (Other)
  Sender: FDA-Public Use
  Company Number: JP-BOEHRINGER INGELHEIM PHARMACEUTICALS, INC.-2006-BP-03440NB

PATIENT
  Sex: Male

DRUGS (3)
  1. BI-SIFROL TABLETS [Suspect]
     Indication: PARKINSON'S DISEASE
     Route: 048
     Dates: start: 20060316, end: 20060319
  2. SYMMETREL [Concomitant]
     Indication: PARKINSON'S DISEASE
     Route: 048
     Dates: end: 20060319
  3. NEODOPASOL [Concomitant]
     Indication: PARKINSON'S DISEASE
     Route: 048
     Dates: start: 20060316, end: 20060321

REACTIONS (3)
  - DELIRIUM [None]
  - DISORIENTATION [None]
  - HALLUCINATION, VISUAL [None]
